FAERS Safety Report 10460791 (Version 1)
Quarter: 2014Q3

REPORT INFORMATION
  Report Type: Spontaneous
  Country: US (occurrence: US)
  Receive Date: 20140918
  Receipt Date: 20140918
  Transmission Date: 20150326
  Serious: No
  Sender: FDA-Public Use
  Company Number: US-BIOGENIDEC-2014BI094235

PATIENT
  Sex: Female

DRUGS (1)
  1. TECFIDERA [Suspect]
     Active Substance: DIMETHYL FUMARATE
     Indication: MULTIPLE SCLEROSIS

REACTIONS (6)
  - Musculoskeletal disorder [Unknown]
  - Dyslexia [Unknown]
  - Migraine [Unknown]
  - Multiple sclerosis [Unknown]
  - Gait disturbance [Unknown]
  - Central nervous system lesion [Unknown]
